FAERS Safety Report 16645567 (Version 1)
Quarter: 2019Q3

REPORT INFORMATION
  Report Type: Spontaneous
  Country: US (occurrence: US)
  Receive Date: 20190730
  Receipt Date: 20190730
  Transmission Date: 20191004
  Serious: Yes (Hospitalization, Other)
  Sender: FDA-Public Use
  Company Number: US-AUROBINDO-AUR-APL-2019-043797

PATIENT

DRUGS (3)
  1. DULOXETINE. [Suspect]
     Active Substance: DULOXETINE
     Indication: PAIN
  2. DULOXETINE. [Suspect]
     Active Substance: DULOXETINE
     Indication: ANXIETY DISORDER
     Dosage: 60 MILLIGRAM, DAILY,ON DAY 4 AT 9AM
     Route: 065
  3. DULOXETINE. [Suspect]
     Active Substance: DULOXETINE
     Indication: MAJOR DEPRESSION
     Dosage: 40 MILLIGRAM, DAILY, AT 9 AM (3 DOSES)
     Route: 065

REACTIONS (10)
  - Autonomic nervous system imbalance [Recovered/Resolved]
  - Tenderness [Recovered/Resolved]
  - Anxiety [Recovered/Resolved]
  - Tremor [Recovered/Resolved]
  - Blood alkaline phosphatase increased [Recovered/Resolved]
  - Liver injury [Recovered/Resolved]
  - Hyperthermia [Recovered/Resolved]
  - Alanine aminotransferase increased [Recovered/Resolved]
  - Hyperhidrosis [Recovered/Resolved]
  - Aspartate aminotransferase increased [Recovered/Resolved]
